FAERS Safety Report 4557823-8 (Version None)
Quarter: 2005Q1

REPORT INFORMATION
  Report Type: 
  Country: None (occurrence: None)
  Receive Date: 20050121
  Receipt Date: 20041217
  Transmission Date: 20050727
  Serious: Yes (Hospitalization)
  Sender: FDA-Public Use
  Company Number: 200413968JP

PATIENT
  Age: 77 Year
  Sex: Female

DRUGS (6)
  1. TAXOTERE [Suspect]
     Indication: NEOPLASM MALIGNANT
     Route: 041
  2. UFT [Concomitant]
     Route: 048
  3. JUZENTAIHOTO [Concomitant]
     Route: 048
  4. CEPHARANTHIN [Concomitant]
  5. SELBEX [Concomitant]
  6. GASTROZEPIN [Concomitant]

REACTIONS (4)
  - CEREBRAL INFARCTION [None]
  - COAGULOPATHY [None]
  - FEMUR FRACTURE [None]
  - HUMERUS FRACTURE [None]
